FAERS Safety Report 7736392-5 (Version None)
Quarter: 2011Q3

REPORT INFORMATION
  Report Type: 
  Country: None (occurrence: None)
  Receive Date: 20110902
  Receipt Date: 20110830
  Transmission Date: 20111222
  Serious: Yes (Other)
  Sender: FDA-Public Use
  Company Number: JPI-P-016869

PATIENT
  Age: 39 Year
  Sex: Male
  Weight: 97.5234 kg

DRUGS (2)
  1. LIPITOR [Suspect]
     Indication: BLOOD CHOLESTEROL INCREASED
     Dates: start: 20100101, end: 20110826
  2. XYREM [Suspect]
     Indication: CATAPLEXY
     Dosage: ORAL ; 7.5 GM (3.75 GM,2 IN 1 D),ORAL
     Route: 048
     Dates: start: 20050915

REACTIONS (10)
  - HIATUS HERNIA [None]
  - BLOOD CHOLESTEROL INCREASED [None]
  - VOMITING [None]
  - WEIGHT DECREASED [None]
  - GASTROINTESTINAL HAEMORRHAGE [None]
  - HAEMATOCHEZIA [None]
  - LIVER FUNCTION TEST ABNORMAL [None]
  - BENIGN SMALL INTESTINAL NEOPLASM [None]
  - BENIGN COLONIC NEOPLASM [None]
  - BENIGN GASTRIC NEOPLASM [None]
